FAERS Safety Report 4781099-X (Version None)
Quarter: 2005Q3

REPORT INFORMATION
  Report Type: 
  Country: None (occurrence: None)
  Receive Date: 20050927
  Receipt Date: 20050927
  Transmission Date: 20060218
  Serious: Yes (Hospitalization)
  Sender: FDA-Public Use
  Company Number: None

PATIENT
  Age: 43 Year
  Sex: Male

DRUGS (1)
  1. CROFAB [Suspect]
     Indication: VENOMOUS BITE
     Dosage: 4 GM IN 250 BUT 75ML ADMINI IV DRIP
     Route: 041
     Dates: start: 20050703, end: 20050703

REACTIONS (5)
  - EYE SWELLING [None]
  - LACRIMATION INCREASED [None]
  - NASAL CONGESTION [None]
  - PHARYNGEAL OEDEMA [None]
  - RHINORRHOEA [None]
